FAERS Safety Report 9507232 (Version 2)
Quarter: 2014Q1

REPORT INFORMATION
  Report Type: Spontaneous
  Country: US (occurrence: None)
  Receive Date: 20130305
  Receipt Date: 20140306
  Transmission Date: 20141002
  Serious: Yes (Hospitalization, Other)
  Sender: FDA-Public Use
  Company Number: 163-21880-12112956

PATIENT
  Age: 69 Year
  Sex: Male
  Weight: 87.2 kg

DRUGS (2)
  1. REVLIMID [Suspect]
     Indication: PLASMA CELL MYELOMA
     Route: 048
     Dates: start: 20100512
  2. ADVAIR (SERETIDE MITE) (INHALANT) [Concomitant]

REACTIONS (13)
  - Full blood count decreased [None]
  - Sinusitis [None]
  - Drug dose omission [None]
  - Nasopharyngitis [None]
  - Dyspnoea [None]
  - Monoclonal immunoglobulin present [None]
  - Drug ineffective [None]
  - Rhinitis [None]
  - Rhinitis [None]
  - White blood cell count decreased [None]
  - Sinusitis [None]
  - Platelet count decreased [None]
  - Neutrophil count decreased [None]
